FAERS Safety Report 6331532-7 (Version None)
Quarter: 2009Q3

REPORT INFORMATION
  Report Type: 
  Country: None (occurrence: None)
  Receive Date: 20090827
  Receipt Date: 20090731
  Transmission Date: 20100115
  Serious: No
  Sender: FDA-Public Use
  Company Number: US-BAYER-200913026BCC

PATIENT
  Age: 84 Year
  Sex: Female
  Weight: 82 kg

DRUGS (6)
  1. ALEVE (CAPLET) [Suspect]
     Indication: ARTHRALGIA
     Dosage: TOTAL DAILY DOSE: 440 MG  UNIT DOSE: 220 MG
     Route: 048
     Dates: start: 20090101, end: 20090101
  2. ALEVE (CAPLET) [Suspect]
     Dosage: TOTAL DAILY DOSE: 220 MG  UNIT DOSE: 220 MG
     Route: 048
     Dates: start: 20090101
  3. AZOR [Concomitant]
     Dosage: TOOK 5 TO 20 MG
     Route: 065
  4. SERAX [Concomitant]
     Route: 065
  5. CO-Q-10 [Concomitant]
     Route: 065
  6. LOVAZA [Concomitant]
     Route: 065

REACTIONS (1)
  - MALAISE [None]
